FAERS Safety Report 23508581 (Version 2)
Quarter: 2024Q1

REPORT INFORMATION
  Report Type: Report from Study
  Country: BR (occurrence: BR)
  Receive Date: 20240209
  Receipt Date: 20240220
  Transmission Date: 20240409
  Serious: No
  Sender: FDA-Public Use
  Company Number: BR-002147023-NVSC2023BR103361

PATIENT
  Sex: Female

DRUGS (1)
  1. KISQALI [Suspect]
     Active Substance: RIBOCICLIB
     Indication: Breast cancer female
     Dosage: UNK
     Route: 065
     Dates: start: 20230405

REACTIONS (12)
  - Aphthous ulcer [Unknown]
  - Feeding disorder [Not Recovered/Not Resolved]
  - Decreased immune responsiveness [Unknown]
  - Pain in extremity [Unknown]
  - Arthralgia [Unknown]
  - Peripheral swelling [Recovering/Resolving]
  - Furuncle [Unknown]
  - Discharge [Unknown]
  - Erythema [Unknown]
  - Pain [Unknown]
  - Pyrexia [Unknown]
  - Nausea [Unknown]

NARRATIVE: CASE EVENT DATE: 20230101
